FAERS Safety Report 21737454 (Version 1)
Quarter: 2022Q4

REPORT INFORMATION
  Report Type: Spontaneous
  Country: PT (occurrence: PT)
  Receive Date: 20221216
  Receipt Date: 20221216
  Transmission Date: 20230113
  Serious: Yes (Life-Threatening, Hospitalization, Other)
  Sender: FDA-Public Use
  Company Number: PT-BBM-PT-BBM-202209087

PATIENT
  Age: 28 Year
  Sex: Female

DRUGS (3)
  1. ROPIVACAINE [Suspect]
     Active Substance: ROPIVACAINE
     Indication: Epidural analgesia
     Dosage: A BOLUS WAS ADMINISTERED; MULTIPLE ADMINISTRATIONS
     Route: 065
  2. TRAMADOL [Suspect]
     Active Substance: TRAMADOL
     Indication: Product used for unknown indication
     Dosage: UNK
     Route: 065
  3. SUFENTANIL [Suspect]
     Active Substance: SUFENTANIL
     Indication: Epidural analgesia
     Dosage: A BOLUS WAS ADMINISTERED
     Route: 065

REACTIONS (4)
  - Respiratory arrest [Recovered/Resolved]
  - Bradycardia foetal [Recovered/Resolved]
  - Generalised tonic-clonic seizure [Recovered/Resolved]
  - Exposure during pregnancy [Unknown]
